FAERS Safety Report 10706797 (Version 1)
Quarter: 2015Q1

REPORT INFORMATION
  Report Type: Spontaneous
  Country: US (occurrence: None)
  Receive Date: 20150112
  Receipt Date: 20150112
  Transmission Date: 20150721
  Serious: Yes (Death)
  Sender: FDA-Public Use
  Company Number: None

PATIENT
  Age: 40 Year
  Sex: Male

DRUGS (7)
  1. LANOXIN [Concomitant]
     Active Substance: DIGOXIN
  2. LASIX [Concomitant]
     Active Substance: FUROSEMIDE
  3. LETAIRIS [Suspect]
     Active Substance: AMBRISENTAN
     Indication: PULMONARY HYPERTENSION
     Dosage: LETAIRIS 10MG  1 TAB PO DAILY  ORAL
     Route: 048
     Dates: start: 201303, end: 20150104
  4. DILTIAZEM [Concomitant]
     Active Substance: DILTIAZEM
  5. K-TAB [Concomitant]
     Active Substance: POTASSIUM CHLORIDE
  6. ALDACTONE [Concomitant]
     Active Substance: SPIRONOLACTONE
  7. REMODULIN [Concomitant]
     Active Substance: TREPROSTINIL

REACTIONS (8)
  - Ventricular fibrillation [None]
  - Cardiac failure congestive [None]
  - Treatment noncompliance [None]
  - Drug ineffective [None]
  - Acute respiratory failure [None]
  - Pulmonary arterial hypertension [None]
  - Therapy cessation [None]
  - Condition aggravated [None]

NARRATIVE: CASE EVENT DATE: 20150104
